FAERS Safety Report 4664551-7 (Version None)
Quarter: 2005Q2

REPORT INFORMATION
  Report Type: 
  Country: None (occurrence: None)
  Receive Date: 20050518
  Receipt Date: 20050309
  Transmission Date: 20051028
  Serious: Yes (Hospitalization, Other)
  Sender: FDA-Public Use
  Company Number: US-GLAXOSMITHKLINE-A0549067A

PATIENT
  Age: 55 Year
  Sex: Female
  Weight: 63.6 kg

DRUGS (5)
  1. PAXIL [Suspect]
     Dosage: 20MG PER DAY
     Route: 048
     Dates: end: 20050216
  2. DEMEROL [Suspect]
     Dosage: 25MG SINGLE DOSE
     Dates: start: 20050217, end: 20050201
  3. SYNTHROID [Concomitant]
  4. TAMOXIFEN [Concomitant]
  5. FOSAMAX [Concomitant]

REACTIONS (13)
  - ANXIETY [None]
  - CENTRAL NERVOUS SYSTEM STIMULATION [None]
  - DISTURBANCE IN ATTENTION [None]
  - DRUG WITHDRAWAL SYNDROME [None]
  - EMOTIONAL DISORDER [None]
  - FEELING COLD [None]
  - HOT FLUSH [None]
  - INSOMNIA [None]
  - NAUSEA [None]
  - NERVOUSNESS [None]
  - NIGHTMARE [None]
  - RESPIRATORY ARREST [None]
  - VOMITING [None]
